FAERS Safety Report 14828842 (Version 4)
Quarter: 2018Q2

REPORT INFORMATION
  Report Type: Spontaneous
  Country: US (occurrence: US)
  Receive Date: 20180430
  Receipt Date: 20180515
  Transmission Date: 20180711
  Serious: No
  Sender: FDA-Public Use
  Company Number: US-PFIZER INC-2018174067

PATIENT
  Age: 70 Year
  Sex: Female

DRUGS (1)
  1. IBRANCE [Suspect]
     Active Substance: PALBOCICLIB
     Indication: BREAST CANCER METASTATIC
     Dosage: 125 MG, CYCLIC (DAILY WITH FOOD TAKE 3 WEEKS ON AND THEN 1 WEEK OFF)
     Route: 048
     Dates: start: 20180423

REACTIONS (10)
  - Motion sickness [Unknown]
  - White blood cell count decreased [Unknown]
  - Nervousness [Unknown]
  - Nasal congestion [Recovered/Resolved]
  - Nasopharyngitis [Unknown]
  - Red blood cell count decreased [Unknown]
  - Fatigue [Unknown]
  - Alopecia [Unknown]
  - Nausea [Recovering/Resolving]
  - Drug hypersensitivity [Unknown]

NARRATIVE: CASE EVENT DATE: 2018
